FAERS Safety Report 10167597 (Version 2)
Quarter: 2014Q2

REPORT INFORMATION
  Report Type: Report from Study
  Country: US (occurrence: US)
  Receive Date: 20140512
  Receipt Date: 20140625
  Transmission Date: 20141212
  Serious: Yes (Other)
  Sender: FDA-Public Use
  Company Number: US-BAYER-2014-065538

PATIENT
  Age: 44 Year
  Sex: Male
  Weight: 107.94 kg

DRUGS (6)
  1. ADEMPAS [Suspect]
     Indication: PULMONARY HYPERTENSION
     Dosage: 2.0 MG, TID
     Dates: start: 201311
  2. ADEMPAS [Suspect]
     Indication: PULMONARY HYPERTENSION
     Dosage: 1.5 MG, TID
  3. HYDROXYCHLOROQUINE [Concomitant]
     Dosage: 200 MG, BID
  4. PANTOPRAZOLE [Concomitant]
     Dosage: 40 MG, QD
  5. COUMADIN [Concomitant]
     Indication: PULMONARY EMBOLISM
     Dosage: 5 MG, ^1 B ALTERNATING 11/2^
     Dates: start: 201008
  6. GABAPENTIN [Concomitant]
     Dosage: 300 MG, TID

REACTIONS (7)
  - Dizziness [None]
  - Dyspnoea [None]
  - Syncope [None]
  - Asthenia [None]
  - Head discomfort [None]
  - Ear discomfort [None]
  - Eye pain [None]
